FAERS Safety Report 8074424-8 (Version None)
Quarter: 2012Q1

REPORT INFORMATION
  Report Type: 
  Country: None (occurrence: None)
  Receive Date: 20120126
  Receipt Date: 20120117
  Transmission Date: 20120608
  Serious: Yes (Other)
  Sender: FDA-Public Use
  Company Number: GB-GLAXOSMITHKLINE-B0776004A

PATIENT
  Age: 23 Year
  Sex: Female

DRUGS (5)
  1. FLUOXETINE [Concomitant]
  2. ACETAMINOPHEN [Concomitant]
  3. IBUPROFEN [Concomitant]
  4. MALARONE [Suspect]
     Indication: MALARIA PROPHYLAXIS
     Route: 048
     Dates: start: 20110301
  5. AMITRIPTYLINE HCL [Concomitant]

REACTIONS (7)
  - ABNORMAL DREAMS [None]
  - SWELLING FACE [None]
  - ANGIOEDEMA [None]
  - URTICARIA [None]
  - HYPERSOMNIA [None]
  - DYSPHONIA [None]
  - RESPIRATION ABNORMAL [None]
